FAERS Safety Report 18259965 (Version 3)
Quarter: 2020Q4

REPORT INFORMATION
  Report Type: Spontaneous
  Country: DE (occurrence: DE)
  Receive Date: 20200912
  Receipt Date: 20201002
  Transmission Date: 20210113
  Serious: Yes (Other)
  Sender: FDA-Public Use
  Company Number: NVSC2020DE212834

PATIENT
  Sex: Male
  Weight: 65 kg

DRUGS (5)
  1. BACLOFEN. [Concomitant]
     Active Substance: BACLOFEN
     Indication: MUSCLE SPASTICITY
     Dosage: 40 MG, QD
     Route: 065
     Dates: start: 2009, end: 20200803
  2. METHYLPREDNISOLONE. [Concomitant]
     Active Substance: METHYLPREDNISOLONE
     Dosage: 1 G
     Route: 065
     Dates: start: 20200710, end: 202007
  3. METHYLPREDNISOLONE. [Concomitant]
     Active Substance: METHYLPREDNISOLONE
     Indication: PRODUCT USED FOR UNKNOWN INDICATION
     Dosage: 1 G
     Route: 065
     Dates: start: 202002, end: 202002
  4. GILENYA [Suspect]
     Active Substance: FINGOLIMOD HYDROCHLORIDE
     Indication: MULTIPLE SCLEROSIS
     Dosage: 0.5 MG, QD
     Route: 065
     Dates: start: 2014, end: 20200703
  5. GILENYA [Suspect]
     Active Substance: FINGOLIMOD HYDROCHLORIDE
     Dosage: UNK
     Route: 065
     Dates: start: 202007

REACTIONS (7)
  - Anaemia [Not Recovered/Not Resolved]
  - Varicella zoster virus infection [Recovered/Resolved with Sequelae]
  - Fatigue [Recovering/Resolving]
  - Hepatic enzyme increased [Not Recovered/Not Resolved]
  - Herpes zoster [Recovered/Resolved with Sequelae]
  - Leukopenia [Not Recovered/Not Resolved]
  - Headache [Recovering/Resolving]

NARRATIVE: CASE EVENT DATE: 201807
